FAERS Safety Report 18718854 (Version 1)
Quarter: 2021Q1

REPORT INFORMATION
  Report Type: Report from Study
  Country: US (occurrence: US)
  Receive Date: 20210108
  Receipt Date: 20210108
  Transmission Date: 20210419
  Serious: Yes (Other)
  Sender: FDA-Public Use
  Company Number: US-BAUSCH-BL-2021-000057

PATIENT
  Age: 57 Year
  Sex: Female

DRUGS (4)
  1. MULTIVITAMINS [Concomitant]
     Active Substance: VITAMINS
     Indication: PRODUCT USED FOR UNKNOWN INDICATION
  2. UCERIS [Suspect]
     Active Substance: BUDESONIDE
     Indication: COLITIS ULCERATIVE
     Dosage: STARTED 2?3 MONTHS AGO, USED FOR ABOUT 1?1.5 MONTHS CONSISTENTLY AND THEN DISCONTINUED
     Route: 065
     Dates: start: 2020, end: 2020
  3. UCERIS [Suspect]
     Active Substance: BUDESONIDE
     Dosage: AS NEEDED
     Route: 065
     Dates: start: 2020, end: 202012
  4. VITAMIN B12 [Concomitant]
     Active Substance: CYANOCOBALAMIN
     Indication: PRODUCT USED FOR UNKNOWN INDICATION
     Dosage: 9 UNSPECIFIED UNIT

REACTIONS (3)
  - Symptom recurrence [Unknown]
  - Blood pressure increased [Recovered/Resolved]
  - Colitis ulcerative [Unknown]

NARRATIVE: CASE EVENT DATE: 2020
